FAERS Safety Report 8842264 (Version 1)
Quarter: 2012Q4

REPORT INFORMATION
  Report Type: Spontaneous
  Country: US (occurrence: None)
  Receive Date: 20121015
  Receipt Date: 20121015
  Transmission Date: 20130627
  Serious: No
  Sender: FDA-Public Use
  Company Number: None

PATIENT
  Age: 21 Year
  Sex: Female
  Weight: 90.72 kg

DRUGS (1)
  1. LEVOFLOXACIN [Suspect]
     Indication: BRONCHITIS
     Route: 048
     Dates: start: 20121010, end: 20121012

REACTIONS (8)
  - Urticaria [None]
  - Pain [None]
  - Discomfort [None]
  - Abasia [None]
  - Vomiting [None]
  - Tenderness [None]
  - Dysstasia [None]
  - Unevaluable event [None]
